FAERS Safety Report 21994891 (Version 1)
Quarter: 2023Q1

REPORT INFORMATION
  Report Type: Spontaneous
  Country: DE (occurrence: DE)
  Receive Date: 20230215
  Receipt Date: 20230215
  Transmission Date: 20230418
  Serious: Yes (Other)
  Sender: FDA-Public Use
  Company Number: DE-ASTELLAS-2023US003399

PATIENT
  Sex: Male

DRUGS (2)
  1. TRENANTONE [Suspect]
     Active Substance: LEUPROLIDE ACETATE
     Indication: Product used for unknown indication
     Dosage: 11.25 MILLIGRAM, Q3MONTHS
     Route: 065
     Dates: start: 20220707
  2. XTANDI [Suspect]
     Active Substance: ENZALUTAMIDE
     Indication: Prostate cancer metastatic
     Dosage: 160 MILLIGRAM, QD
     Route: 065
     Dates: start: 20221031, end: 20221121

REACTIONS (15)
  - Memory impairment [Unknown]
  - Cognitive disorder [Recovered/Resolved]
  - Balance disorder [Unknown]
  - Asthenia [Recovered/Resolved]
  - Headache [Unknown]
  - Gait disturbance [Unknown]
  - Chills [Unknown]
  - Hemihypoaesthesia [Recovered/Resolved]
  - Pyrexia [Unknown]
  - Lip injury [Recovered/Resolved]
  - Head discomfort [Unknown]
  - Speech disorder [Recovered/Resolved]
  - Malignant neoplasm progression [Unknown]
  - Seizure [Recovered/Resolved]
  - Dizziness [Unknown]

NARRATIVE: CASE EVENT DATE: 20221101
